FAERS Safety Report 11584982 (Version 1)
Quarter: 2015Q4

REPORT INFORMATION
  Report Type: Spontaneous
  Country: US (occurrence: US)
  Receive Date: 20151001
  Receipt Date: 20151001
  Transmission Date: 20160304
  Serious: Yes (Other)
  Sender: FDA-Public Use
  Company Number: US-PFIZER INC-2015322234

PATIENT
  Age: 23 Year
  Sex: Male

DRUGS (1)
  1. ALPRAZOLAM. [Suspect]
     Active Substance: ALPRAZOLAM
     Dosage: UNK

REACTIONS (9)
  - Drug withdrawal syndrome [Unknown]
  - Drug abuse [Unknown]
  - Euphoric mood [Unknown]
  - Poisoning [Unknown]
  - Drug tolerance [Unknown]
  - Drug dependence [Unknown]
  - Tremor [Unknown]
  - Hyperhidrosis [Unknown]
  - Activities of daily living impaired [Unknown]
